FAERS Safety Report 5897003-7 (Version None)
Quarter: 2008Q3

REPORT INFORMATION
  Report Type: 
  Country: None (occurrence: None)
  Receive Date: 20080924
  Receipt Date: 20080709
  Transmission Date: 20090109
  Serious: Yes (Hospitalization)
  Sender: FDA-Public Use
  Company Number: US-ASTRAZENECA-2008UW01685

PATIENT
  Age: 32 Year
  Sex: Female
  Weight: 117.9 kg

DRUGS (12)
  1. SEROQUEL [Suspect]
     Indication: SLEEP APNOEA SYNDROME
     Dosage: 50 MG; 300 MG
     Route: 048
     Dates: start: 20000101
  2. SEROQUEL [Suspect]
     Indication: BIPOLAR DISORDER
     Dosage: 50 MG; 300 MG
     Route: 048
     Dates: start: 20000101
  3. ABILIFY [Concomitant]
     Dates: start: 20070101
  4. GEODON [Concomitant]
     Dates: start: 20070101
  5. HALDOL [Concomitant]
  6. ZYPREXA [Concomitant]
  7. TEGRETOL [Concomitant]
  8. NEURONTIN [Concomitant]
  9. ZOLOFT [Concomitant]
  10. VISTARIL [Concomitant]
  11. VISTARIL [Concomitant]
  12. BUSBAN [Concomitant]

REACTIONS (4)
  - BLOOD CHOLESTEROL INCREASED [None]
  - DIABETES MELLITUS [None]
  - HYPERTENSION [None]
  - OBESITY [None]
